FAERS Safety Report 16235923 (Version 1)
Quarter: 2019Q2

REPORT INFORMATION
  Report Type: Spontaneous
  Country: CA (occurrence: CA)
  Receive Date: 20190425
  Receipt Date: 20190425
  Transmission Date: 20190711
  Serious: Yes (Other)
  Sender: FDA-Public Use
  Company Number: CA-B.I. PHARMACEUTICALS,INC./RIDGEFIELD-2019-BI-018778

PATIENT
  Age: 29 Year
  Sex: Female
  Weight: 85 kg

DRUGS (7)
  1. MOBICOX [Suspect]
     Active Substance: MELOXICAM
     Indication: PRODUCT USED FOR UNKNOWN INDICATION
     Route: 065
  2. M-ESLON [Concomitant]
     Active Substance: MORPHINE SULFATE
     Indication: PRODUCT USED FOR UNKNOWN INDICATION
     Dosage: CAPSULE, EXTENDED RELEASE
     Route: 048
  3. ETANERCEPT [Suspect]
     Active Substance: ETANERCEPT
     Indication: PRODUCT USED FOR UNKNOWN INDICATION
     Route: 058
  4. HUMIRA [Concomitant]
     Active Substance: ADALIMUMAB
     Indication: PRODUCT USED FOR UNKNOWN INDICATION
     Dosage: SOLUTION SUBCUTANEOUS
     Route: 065
  5. FOLIC ACID. [Concomitant]
     Active Substance: FOLIC ACID
     Indication: PRODUCT USED FOR UNKNOWN INDICATION
     Route: 065
  6. METHOTREXATE. [Suspect]
     Active Substance: METHOTREXATE
     Indication: PRODUCT USED FOR UNKNOWN INDICATION
     Route: 058
  7. INFLIXIMAB [Suspect]
     Active Substance: INFLIXIMAB
     Indication: PSORIATIC ARTHROPATHY
     Route: 042

REACTIONS (13)
  - Musculoskeletal stiffness [Recovered/Resolved]
  - Sacroiliitis [Recovered/Resolved]
  - Drug ineffective [Recovered/Resolved]
  - Dactylitis [Recovered/Resolved]
  - Hip surgery [Recovered/Resolved]
  - Condition aggravated [Recovered/Resolved]
  - Infusion [Recovered/Resolved]
  - Inflammation [Recovered/Resolved]
  - Spinal disorder [Recovered/Resolved]
  - Enthesopathy [Recovered/Resolved]
  - Psoriatic arthropathy [Recovered/Resolved]
  - Drug hypersensitivity [Recovered/Resolved]
  - Arthropathy [Recovered/Resolved]
